FAERS Safety Report 6063629-3 (Version None)
Quarter: 2009Q1

REPORT INFORMATION
  Report Type: 
  Country: None (occurrence: None)
  Receive Date: 20090203
  Receipt Date: 20090127
  Transmission Date: 20090719
  Serious: Yes (Death, Hospitalization)
  Sender: FDA-Public Use
  Company Number: PL-GILEAD-2008-0017793

PATIENT
  Sex: Male

DRUGS (1)
  1. HEPSERA [Suspect]
     Indication: HEPATITIS B
     Route: 048
     Dates: start: 20070604, end: 20080921

REACTIONS (3)
  - ASCITES [None]
  - HEPATIC CIRRHOSIS [None]
  - HEPATIC FAILURE [None]
